FAERS Safety Report 12434678 (Version 1)
Quarter: 2016Q2

REPORT INFORMATION
  Report Type: Report from Study
  Country: US (occurrence: US)
  Receive Date: 20160603
  Receipt Date: 20160603
  Transmission Date: 20160815
  Serious: No
  Sender: FDA-Public Use
  Company Number: US-MDT-ADR-2016-00090

PATIENT
  Age: 54 Year
  Sex: Male

DRUGS (11)
  1. COMPOUNDED BACLOFEN [Suspect]
     Active Substance: BACLOFEN
     Dosage: 200.05 MCG/DAY
     Route: 037
     Dates: start: 20160108
  2. DILAUDID [Suspect]
     Active Substance: HYDROMORPHONE HYDROCHLORIDE
     Dosage: 0.7002 MG/DAY
     Route: 037
     Dates: end: 20151210
  3. DILAUDID [Suspect]
     Active Substance: HYDROMORPHONE HYDROCHLORIDE
     Dosage: 0.8010 MG/DAY
     Route: 037
     Dates: start: 20151210, end: 20160108
  4. LIDODERM [Suspect]
     Active Substance: LIDOCAINE
     Route: 037
  5. BUPIVACAINE. [Suspect]
     Active Substance: BUPIVACAINE
     Dosage: 15.004 MG/DAY
     Route: 037
     Dates: start: 20160108
  6. DILAUDID [Suspect]
     Active Substance: HYDROMORPHONE HYDROCHLORIDE
     Dosage: 1.0002 MG/DAY
     Route: 037
     Dates: start: 20160108
  7. BUPIVACAINE. [Suspect]
     Active Substance: BUPIVACAINE
     Dosage: 12.016 MG/DAY
     Route: 037
     Dates: start: 20151210, end: 20160108
  8. COMPOUNDED BACLFOEN [Suspect]
     Active Substance: BACLOFEN
     Dosage: 160.21 MCG/DAY
     Route: 037
     Dates: start: 20151210, end: 20160108
  9. COMPOUNDED BACLOFEN [Suspect]
     Active Substance: BACLOFEN
     Dosage: 140.03 MCG/DAY
     Route: 037
     Dates: end: 20151210
  10. BUPIVACAINE. [Suspect]
     Active Substance: BUPIVACAINE
     Dosage: 10.503 MG/DAY
     Route: 037
     Dates: end: 20151210
  11. BACLOFEN. [Suspect]
     Active Substance: BACLOFEN
     Route: 037

REACTIONS (4)
  - Vomiting [None]
  - Nausea [None]
  - Hyperhidrosis [Unknown]
  - Sedation [Unknown]

NARRATIVE: CASE EVENT DATE: 20151210
